FAERS Safety Report 5502556-4 (Version None)
Quarter: 2007Q4

REPORT INFORMATION
  Report Type: 
  Country: None (occurrence: None)
  Receive Date: 20071030
  Receipt Date: 20071026
  Transmission Date: 20080405
  Serious: Yes (Death, Hospitalization, Disabling)
  Sender: FDA-Public Use
  Company Number: PHHO2005JP11366

PATIENT
  Age: 74 Year
  Sex: Male

DRUGS (17)
  1. GLEEVEC [Suspect]
     Indication: CHRONIC MYELOID LEUKAEMIA
     Dosage: 100 MG, QD
     Route: 048
     Dates: start: 20040308, end: 20040315
  2. GLEEVEC [Suspect]
     Dosage: 100 MG, QD
     Route: 048
     Dates: start: 20040323, end: 20040405
  3. GLEEVEC [Suspect]
     Route: 048
     Dates: start: 20040406, end: 20040412
  4. GLEEVEC [Suspect]
     Dosage: 100 MG, QD
     Route: 048
     Dates: start: 20040413, end: 20040426
  5. GLEEVEC [Suspect]
     Route: 048
     Dates: start: 20040427, end: 20040524
  6. GLEEVEC [Suspect]
     Dosage: 100 MG, QD
     Route: 048
     Dates: start: 20040525, end: 20040628
  7. GLEEVEC [Suspect]
     Dosage: UNK, UNK
     Route: 048
     Dates: start: 20040629, end: 20040921
  8. GLEEVEC [Suspect]
     Dosage: 100 MG, QD
     Route: 048
     Dates: start: 20040922, end: 20041012
  9. GLEEVEC [Suspect]
     Route: 048
     Dates: start: 20041013, end: 20041122
  10. GLEEVEC [Suspect]
     Dosage: 200 MG, QD
     Route: 048
     Dates: start: 20041123, end: 20050222
  11. GLEEVEC [Suspect]
     Dosage: 200 MG, QD
     Route: 048
     Dates: start: 20050404, end: 20050508
  12. GLEEVEC [Suspect]
     Dosage: 400 MG, QD
     Route: 048
     Dates: start: 20050606, end: 20050612
  13. GLEEVEC [Suspect]
     Dosage: 200 MG, QD
     Route: 048
     Dates: start: 20050613, end: 20050703
  14. GLEEVEC [Suspect]
     Dosage: 100 MG, QD
     Route: 048
     Dates: start: 20050711, end: 20050718
  15. GLEEVEC [Suspect]
     Dosage: 100 MG, QD
     Route: 048
     Dates: start: 20050801, end: 20050904
  16. GLEEVEC [Suspect]
     Dosage: 200 MG, QD
     Route: 048
     Dates: start: 20050905, end: 20050914
  17. JUVELA NICOTINATE [Concomitant]
     Indication: POOR PERIPHERAL CIRCULATION
     Dates: start: 20040922, end: 20050320

REACTIONS (20)
  - BASOPHIL COUNT INCREASED [None]
  - BLAST CELL COUNT INCREASED [None]
  - BLOOD CREATININE INCREASED [None]
  - BONE PAIN [None]
  - BRAIN OEDEMA [None]
  - DYSLALIA [None]
  - EOSINOPHIL COUNT INCREASED [None]
  - HAEMATOCRIT DECREASED [None]
  - HAEMOGLOBIN DECREASED [None]
  - LIVER DISORDER [None]
  - LYMPHOCYTE COUNT DECREASED [None]
  - METAMYELOCYTE COUNT INCREASED [None]
  - MONOCYTE COUNT INCREASED [None]
  - NAUSEA [None]
  - NEUTROPHIL COUNT DECREASED [None]
  - PANCYTOPENIA [None]
  - PLATELET COUNT DECREASED [None]
  - RED BLOOD CELL COUNT DECREASED [None]
  - SUBDURAL HAEMATOMA [None]
  - WHITE BLOOD CELL COUNT DECREASED [None]
